FAERS Safety Report 5514398-4 (Version None)
Quarter: 2007Q4

REPORT INFORMATION
  Report Type: 
  Country: None (occurrence: None)
  Receive Date: 20071113
  Receipt Date: 20070507
  Transmission Date: 20080405
  Serious: No
  Sender: FDA-Public Use
  Company Number: A0650489A

PATIENT
  Age: 68 Year
  Sex: Female

DRUGS (10)
  1. COREG [Suspect]
     Dosage: 3.125MG TWICE PER DAY
     Route: 048
     Dates: start: 20070406
  2. THEOPHYLLINE [Concomitant]
  3. WELLBUTRIN [Concomitant]
  4. ZOCOR [Concomitant]
  5. ALEVE [Concomitant]
  6. ZANTAC [Concomitant]
  7. ASPIRIN [Concomitant]
  8. CALCIUM D [Concomitant]
  9. LIBRIUM [Concomitant]
  10. MULTI-VITAMIN [Concomitant]

REACTIONS (2)
  - DIZZINESS [None]
  - DYSPNOEA [None]
